FAERS Safety Report 12798542 (Version 1)
Quarter: 2016Q3

REPORT INFORMATION
  Report Type: Spontaneous
  Country: US (occurrence: US)
  Receive Date: 20160930
  Receipt Date: 20160930
  Transmission Date: 20161109
  Serious: Yes (Other)
  Sender: FDA-Public Use
  Company Number: US-BELCHER PHARMACEUTICALS, LLC-2016VTS00086

PATIENT
  Age: 10 Year
  Sex: Female
  Weight: 49.66 kg

DRUGS (1)
  1. HYOSCYAMINE SULFATE SL [Suspect]
     Active Substance: HYOSCYAMINE SULFATE
     Indication: ABDOMINAL PAIN UPPER
     Dosage: 0.125 MG, UP TO 6X/DAY
     Route: 060
     Dates: start: 20160815, end: 20160817

REACTIONS (11)
  - Peripheral swelling [Recovered/Resolved]
  - Skin disorder [Not Recovered/Not Resolved]
  - Decreased appetite [Recovered/Resolved]
  - Tremor [Recovered/Resolved]
  - Rash generalised [Recovered/Resolved]
  - Pyrexia [Recovered/Resolved]
  - Abasia [Recovered/Resolved]
  - Urticaria [Recovered/Resolved]
  - Pain [Recovered/Resolved]
  - Pruritus [Recovered/Resolved]
  - Feeling cold [Recovered/Resolved]

NARRATIVE: CASE EVENT DATE: 2016
